FAERS Safety Report 9026679 (Version 1)
Quarter: 2012Q4

REPORT INFORMATION
  Report Type: Spontaneous
  Country: US (occurrence: None)
  Receive Date: 20121231
  Receipt Date: 20121231
  Transmission Date: 20130627
  Serious: Yes (Hospitalization)
  Sender: FDA-Public Use
  Company Number: 2012PROUSA02391

PATIENT
  Age: 87 Year
  Sex: Male
  Weight: 80.8 kg

DRUGS (2)
  1. PROVENGE (SIPULEUCEL-T) SUSPENSION [Suspect]
     Indication: PROSTATE CANCER METASTATIC
     Route: 042
     Dates: start: 20121119, end: 20121119
  2. PROVENGE (SIPULEUCEL-T) SUSPENSION [Suspect]
     Indication: PROSTATE CANCER METASTATIC
     Route: 042
     Dates: start: 20121203, end: 20121203

REACTIONS (5)
  - Syncope [None]
  - Nausea [None]
  - Vomiting [None]
  - Cardiac flutter [None]
  - Chest pain [None]
